FAERS Safety Report 7135971-6 (Version None)
Quarter: 2010Q4

REPORT INFORMATION
  Report Type: 
  Country: None (occurrence: None)
  Receive Date: 20101204
  Receipt Date: 20101116
  Transmission Date: 20110411
  Serious: Yes (Other)
  Sender: FDA-Public Use
  Company Number: CH-BAYER-201034947GPV

PATIENT
  Sex: Female

DRUGS (13)
  1. EXTAVIA [Suspect]
     Indication: MULTIPLE SCLEROSIS
     Route: 058
     Dates: start: 20100701
  2. EXTAVIA [Suspect]
     Route: 058
  3. EXTAVIA [Suspect]
     Route: 058
     Dates: end: 20100901
  4. PROVENTIL [Concomitant]
  5. NEXIUM [Concomitant]
  6. LISINOPRIL [Concomitant]
  7. PAXIL [Concomitant]
  8. DEPAKOTE [Concomitant]
  9. ADVAIR [Concomitant]
  10. UNCODEABLE ^UNCLASSIFIABLE^ [Concomitant]
  11. GABAPENTIN [Concomitant]
  12. AVINZA [Concomitant]
  13. VICODIN ES [Concomitant]

REACTIONS (10)
  - ABASIA [None]
  - DIZZINESS [None]
  - FATIGUE [None]
  - HEADACHE [None]
  - MULTIPLE SCLEROSIS RELAPSE [None]
  - NAUSEA [None]
  - PAIN OF SKIN [None]
  - RASH MACULO-PAPULAR [None]
  - RASH PRURITIC [None]
  - VISION BLURRED [None]
